FAERS Safety Report 9290053 (Version 1)
Quarter: 2013Q2

REPORT INFORMATION
  Report Type: Spontaneous
  Country: US (occurrence: None)
  Receive Date: 20130514
  Receipt Date: 20130514
  Transmission Date: 20140414
  Serious: No
  Sender: FDA-Public Use
  Company Number: None

PATIENT
  Sex: Female
  Weight: 85.73 kg

DRUGS (1)
  1. MODAFINIL [Suspect]
     Indication: EPILEPSY
     Route: 048
     Dates: start: 20120813

REACTIONS (1)
  - Drug effect decreased [None]
